FAERS Safety Report 11562660 (Version 1)
Quarter: 2015Q3

REPORT INFORMATION
  Report Type: Spontaneous
  Country: US (occurrence: US)
  Receive Date: 20150916
  Receipt Date: 20150916
  Transmission Date: 20151125
  Serious: No
  Sender: FDA-Public Use
  Company Number: US-ELI_LILLY_AND_COMPANY-US200812004052

PATIENT
  Age: 72 Year
  Sex: Female

DRUGS (18)
  1. DILTIAZEM [Concomitant]
     Active Substance: DILTIAZEM
  2. RESTASIS [Concomitant]
     Active Substance: CYCLOSPORINE
  3. BABY ASPIRIN [Concomitant]
     Active Substance: ASPIRIN
  4. WARFARIN [Concomitant]
     Active Substance: WARFARIN
  5. FISH OIL [Concomitant]
     Active Substance: FISH OIL
  6. SINGULAIR [Concomitant]
     Active Substance: MONTELUKAST SODIUM
  7. ADVAIR DISKUS [Concomitant]
     Active Substance: FLUTICASONE PROPIONATE\SALMETEROL XINAFOATE
  8. VITAMIN B COMPLEX [Concomitant]
     Active Substance: CYANOCOBALAMIN\DEXPANTHENOL\NIACINAMIDE\PYRIDOXINE HYDROCHLORIDE\RIBOFLAVIN 5^-PHOSPHATE SODIUM\THIAMINE HYDROCHLORIDE\VITAMIN B COMPLEX
  9. PROZAC [Concomitant]
     Active Substance: FLUOXETINE HYDROCHLORIDE
  10. PRILOSEC [Concomitant]
     Active Substance: OMEPRAZOLE MAGNESIUM
  11. GLUCOSAMINE SULFATE W/CHONDROITIN [Concomitant]
  12. FORTEO [Suspect]
     Active Substance: TERIPARATIDE
     Indication: OSTEOPOROSIS
     Dosage: 20 UG, DAILY (1/D)
     Dates: start: 20081016
  13. ALBUTEROL. [Concomitant]
     Active Substance: ALBUTEROL
  14. FOLIC ACID. [Concomitant]
     Active Substance: FOLIC ACID
  15. CALCIUM WITH VITAMIN D /00944201/ [Concomitant]
     Active Substance: CALCIUM\VITAMIN D
  16. LUTEIN [Concomitant]
     Active Substance: LUTEIN
  17. ALTOPREV [Concomitant]
     Active Substance: LOVASTATIN
  18. VITAMIN E /001105/ [Concomitant]

REACTIONS (2)
  - Gait disturbance [Not Recovered/Not Resolved]
  - Headache [Not Recovered/Not Resolved]

NARRATIVE: CASE EVENT DATE: 20081213
